FAERS Safety Report 7358889-2 (Version None)
Quarter: 2011Q1

REPORT INFORMATION
  Report Type: 
  Country: None (occurrence: None)
  Receive Date: 20110317
  Receipt Date: 20110311
  Transmission Date: 20110831
  Serious: Yes (Hospitalization, Other)
  Sender: FDA-Public Use
  Company Number: US-PFIZER INC-2006031753

PATIENT
  Sex: Female

DRUGS (13)
  1. SKELAXIN [Concomitant]
     Dosage: UNK
     Route: 065
  2. DEPAKOTE [Concomitant]
     Dosage: UNK
     Route: 065
  3. ZANAFLEX [Concomitant]
     Dosage: UNK
     Route: 065
  4. CELEXA [Concomitant]
     Dosage: UNK
     Route: 065
     Dates: start: 20000530
  5. XANAX [Concomitant]
     Dosage: UNK
     Route: 065
     Dates: start: 20000530
  6. PREMARIN [Concomitant]
     Dosage: UNK
     Route: 065
  7. HYDROCODONE BITARTRATE [Concomitant]
     Dosage: UNK
     Route: 065
  8. NEURONTIN [Suspect]
     Dosage: UNK
     Route: 065
     Dates: start: 20000530
  9. PAXIL [Concomitant]
     Dosage: UNK
     Route: 065
     Dates: start: 20000530
  10. AMITRIPTYLINE [Concomitant]
     Dosage: UNK
     Route: 065
  11. ROMAZICON [Concomitant]
     Dosage: UNK
     Dates: start: 20000530
  12. TRAZODONE [Concomitant]
     Dosage: UNK
     Route: 065
  13. PREVACID [Concomitant]
     Dosage: UNK
     Dates: start: 20000530

REACTIONS (5)
  - SUICIDE ATTEMPT [None]
  - ANXIETY DISORDER [None]
  - SUICIDAL IDEATION [None]
  - INTENTIONAL OVERDOSE [None]
  - MAJOR DEPRESSION [None]
